FAERS Safety Report 9291353 (Version 6)
Quarter: 2014Q3

REPORT INFORMATION
  Report Type: Spontaneous
  Country: US (occurrence: US)
  Receive Date: 20130515
  Receipt Date: 20140926
  Transmission Date: 20150326
  Serious: Yes (Disabling, Other)
  Sender: FDA-Public Use
  Company Number: US-009507513-1305USA008622

PATIENT
  Sex: Male

DRUGS (2)
  1. PRILOSEC [Concomitant]
     Active Substance: OMEPRAZOLE MAGNESIUM
     Indication: GASTROOESOPHAGEAL REFLUX DISEASE
     Dosage: UNK
     Dates: start: 1994, end: 2010
  2. PROPECIA [Suspect]
     Active Substance: FINASTERIDE
     Indication: ALOPECIA
     Dosage: 1 MG, UNK
     Route: 048
     Dates: start: 20030512, end: 20070131

REACTIONS (20)
  - Sexual dysfunction [Unknown]
  - Urinary tract obstruction [Unknown]
  - Benign prostatic hyperplasia [Unknown]
  - Skin cancer [Unknown]
  - Erectile dysfunction [Not Recovered/Not Resolved]
  - Blood testosterone increased [Unknown]
  - Drug dispensing error [Unknown]
  - Pollakiuria [Unknown]
  - Testicular failure [Unknown]
  - Organic erectile dysfunction [Unknown]
  - Hyperkeratosis [Unknown]
  - Blood cholesterol increased [Unknown]
  - Urine flow decreased [Unknown]
  - Vasectomy reversal [Unknown]
  - Libido decreased [Not Recovered/Not Resolved]
  - Drug ineffective [Unknown]
  - Skin papilloma [Unknown]
  - Cryotherapy [Unknown]
  - Limb injury [Not Recovered/Not Resolved]
  - Joint injury [Not Recovered/Not Resolved]

NARRATIVE: CASE EVENT DATE: 2005
